FAERS Safety Report 7405461-1 (Version None)
Quarter: 2011Q2

REPORT INFORMATION
  Report Type: 
  Country: None (occurrence: None)
  Receive Date: 20110411
  Receipt Date: 20110328
  Transmission Date: 20111010
  Serious: Yes (Hospitalization)
  Sender: FDA-Public Use
  Company Number: CA-JNJFOC-20110311755

PATIENT
  Sex: Female
  Weight: 49.5 kg

DRUGS (2)
  1. REMICADE [Suspect]
     Indication: CROHN'S DISEASE
     Dosage: 2ND INFUSION
     Route: 042
  2. REMICADE [Suspect]
     Dosage: RECEIVED INFUSION 1 NINE YEARS AGO
     Route: 042

REACTIONS (5)
  - FLUSHING [None]
  - URTICARIA [None]
  - INFUSION RELATED REACTION [None]
  - CHEST DISCOMFORT [None]
  - RALES [None]
